FAERS Safety Report 7586215-2 (Version None)
Quarter: 2011Q3

REPORT INFORMATION
  Report Type: 
  Country: None (occurrence: None)
  Receive Date: 20110701
  Receipt Date: 20110527
  Transmission Date: 20111222
  Serious: Yes (Other)
  Sender: FDA-Public Use
  Company Number: US-BAYER-201030486NA

PATIENT
  Age: 35 Year
  Sex: Female
  Weight: 77.098 kg

DRUGS (14)
  1. PRILOSEC [Concomitant]
     Indication: MUCOSAL ULCERATION
     Dosage: UNK
     Dates: start: 20080508
  2. DEGLYCYRRHIZINIZED EXTRACT OF LIQUORICE [Concomitant]
     Indication: MUCOSAL ULCERATION
  3. REGLAN [Concomitant]
     Indication: UNEVALUABLE EVENT
     Dosage: 10 MG EVERY 6 HOURS
  4. MEDROXYPROGESTERONE ACETATE [Concomitant]
     Indication: CONTRACEPTION
     Dosage: 150 MG, UNK
     Route: 030
     Dates: start: 20041215
  5. SLIPPERY ELM [Concomitant]
     Indication: OESOPHAGEAL IRRITATION
  6. NEXIUM [Concomitant]
     Dosage: 40 MG, UNK
     Route: 048
     Dates: start: 20080806
  7. ZANTAC [Concomitant]
     Dosage: 150 MG
  8. YAZ [Suspect]
     Indication: CONTRACEPTION
     Dosage: UNK UNK, UNK
     Route: 048
     Dates: start: 20070801, end: 20090429
  9. CLARITIN [Concomitant]
     Dosage: 10 MG, UNK
     Route: 048
     Dates: start: 20040701
  10. MOTRIN [Concomitant]
     Dosage: UNK UNK, PRN
  11. METOCLOPRAMIDE [Concomitant]
     Dosage: 10 MG, UNK
     Route: 048
     Dates: start: 20080801
  12. BISMUTH SUBSALICYLATE [Concomitant]
     Indication: HELICOBACTER INFECTION
  13. VALTREX [Concomitant]
     Dosage: UNKNOWN, PRN
     Route: 048
     Dates: start: 20071101, end: 20090101
  14. DIGESTIVE ENZYMES [Concomitant]
     Indication: OESOPHAGEAL IRRITATION

REACTIONS (3)
  - ABDOMINAL PAIN [None]
  - CHOLECYSTITIS [None]
  - CHOLELITHIASIS [None]
